FAERS Safety Report 8717677 (Version 3)
Quarter: 2014Q2

REPORT INFORMATION
  Report Type: Report from Study
  Country: US (occurrence: US)
  Receive Date: 20120810
  Receipt Date: 20140619
  Transmission Date: 20141212
  Serious: Yes (Hospitalization)
  Sender: FDA-Public Use
  Company Number: US-ACTELION-A-NJ2012-69752

PATIENT
  Age: 48 Year
  Sex: Female

DRUGS (4)
  1. TRACLEER [Suspect]
     Indication: PULMONARY ARTERIAL HYPERTENSION
     Dosage: 125 MG, BID
     Route: 048
     Dates: start: 20140420
  2. TRACLEER [Suspect]
     Dosage: UNK
     Route: 048
     Dates: start: 20130107
  3. BACLOFEN [Suspect]
  4. LYRICA [Suspect]

REACTIONS (6)
  - Dialysis [Recovering/Resolving]
  - Incoherent [Recovered/Resolved]
  - Fluid retention [Recovered/Resolved]
  - Condition aggravated [Recovered/Resolved]
  - Peripheral swelling [Recovered/Resolved]
  - Adverse drug reaction [Recovered/Resolved]
